FAERS Safety Report 7621607-4 (Version None)
Quarter: 2011Q3

REPORT INFORMATION
  Report Type: 
  Country: None (occurrence: None)
  Receive Date: 20110719
  Receipt Date: 20081017
  Transmission Date: 20111222
  Serious: Yes (Disabling, Other)
  Sender: FDA-Public Use
  Company Number: US-BAYER-200825436NA

PATIENT
  Age: 40 Year
  Sex: Male
  Weight: 78.458 kg

DRUGS (16)
  1. PROHANCE [Suspect]
     Indication: NUCLEAR MAGNETIC RESONANCE IMAGING
  2. NEPHROCAPS [Concomitant]
  3. OMNISCAN [Suspect]
     Indication: NUCLEAR MAGNETIC RESONANCE IMAGING
     Dosage: 40 ML, ONCE
     Route: 042
     Dates: start: 20020207, end: 20020207
  4. MULTIHANCE [Suspect]
     Indication: NUCLEAR MAGNETIC RESONANCE IMAGING
  5. GADOLINIUM IN UNSPECIFIED DRUG [Suspect]
  6. MINOCYCLINE HCL [Concomitant]
  7. MAGNEVIST [Suspect]
     Indication: NUCLEAR MAGNETIC RESONANCE IMAGING
     Dosage: UNK
     Dates: start: 20050107, end: 20050107
  8. GADOLINIUM IN UNSPECIFIED DRUG [Suspect]
     Indication: IMAGING PROCEDURE
     Dosage: 18 ML, ONCE
     Route: 042
     Dates: start: 20010113, end: 20010113
  9. FOLIC ACID [Concomitant]
  10. PHOSLO [Concomitant]
  11. ACETYLSALICYLIC ACID SRT [Concomitant]
  12. OPTIMARK [Suspect]
     Indication: NUCLEAR MAGNETIC RESONANCE IMAGING
  13. COUMADIN [Concomitant]
  14. PREDNISONE [Concomitant]
  15. EPOGEN [Concomitant]
  16. RENAGEL [Concomitant]

REACTIONS (19)
  - ANXIETY [None]
  - ABASIA [None]
  - PAIN [None]
  - DYSPHAGIA [None]
  - NEPHROGENIC SYSTEMIC FIBROSIS [None]
  - SWELLING [None]
  - EMOTIONAL DISTRESS [None]
  - GENERAL PHYSICAL HEALTH DETERIORATION [None]
  - SKIN HYPERPIGMENTATION [None]
  - SKIN DISCOLOURATION [None]
  - ANHEDONIA [None]
  - MUSCULAR WEAKNESS [None]
  - INDURATION [None]
  - LIMB INJURY [None]
  - SCAR [None]
  - DEPRESSION [None]
  - SKIN HYPERTROPHY [None]
  - INJURY [None]
  - COORDINATION ABNORMAL [None]
